FAERS Safety Report 4609369-6 (Version None)
Quarter: 2005Q1

REPORT INFORMATION
  Report Type: 
  Country: None (occurrence: None)
  Receive Date: 20050314
  Receipt Date: 20050301
  Transmission Date: 20050727
  Serious: Yes (Other)
  Sender: FDA-Public Use
  Company Number: 2005042046

PATIENT
  Age: 15 Year
  Sex: Male

DRUGS (8)
  1. DIFLUCAN [Suspect]
     Indication: PROPHYLAXIS
     Dosage: ORAL
     Route: 048
     Dates: end: 20040304
  2. BACTRIM [Suspect]
     Indication: PROPHYLAXIS
     Dosage: ORAL
     Route: 048
     Dates: end: 20040304
  3. AMIKACIN [Suspect]
     Indication: ILL-DEFINED DISORDER
     Dosage: INTRAVENOUS
     Route: 042
     Dates: end: 20040101
  4. CEFOTIAM (CEFOTIAM) [Suspect]
     Indication: ILL-DEFINED DISORDER
     Dosage: INTRAVENOUS
     Route: 042
     Dates: end: 20040304
  5. MICAFUNGIN (MICAFUNGIN) [Suspect]
     Indication: FUNGAL INFECTION
     Dosage: INTRAVENOUS
     Route: 042
  6. IMIPENEM (IMIPENEM) [Suspect]
     Indication: PSEUDOMONAS INFECTION
     Dosage: UNKNOWN
     Route: 065
     Dates: end: 20040304
  7. CYTARABINE [Concomitant]
  8. ETOPOSIDE [Concomitant]

REACTIONS (11)
  - ASPERGILLOSIS [None]
  - BACTERIA BLOOD IDENTIFIED [None]
  - BLOOD ALBUMIN DECREASED [None]
  - C-REACTIVE PROTEIN INCREASED [None]
  - FUNGAL INFECTION [None]
  - GENERALISED OEDEMA [None]
  - HAEMOLYTIC URAEMIC SYNDROME [None]
  - NEPHROPATHY TOXIC [None]
  - OCCULT BLOOD [None]
  - PSEUDOMONAS INFECTION [None]
  - WHITE BLOOD CELL COUNT DECREASED [None]
